FAERS Safety Report 7519179-8 (Version None)
Quarter: 2011Q2

REPORT INFORMATION
  Report Type: 
  Country: None (occurrence: None)
  Receive Date: 20110602
  Receipt Date: 20100611
  Transmission Date: 20111010
  Serious: No
  Sender: FDA-Public Use
  Company Number: US-KINGPHARMUSA00001-K201000721

PATIENT
  Sex: Male

DRUGS (1)
  1. CORTISPORIN [Suspect]
     Dosage: GTT, UNK
     Route: 047
     Dates: start: 20090101, end: 20090101

REACTIONS (3)
  - INCORRECT ROUTE OF DRUG ADMINISTRATION [None]
  - NO ADVERSE EVENT [None]
  - DRUG DISPENSING ERROR [None]
